FAERS Safety Report 6675190-0 (Version None)
Quarter: 2010Q2

REPORT INFORMATION
  Report Type: 
  Country: None (occurrence: None)
  Receive Date: 20100409
  Receipt Date: 20100330
  Transmission Date: 20101027
  Serious: Yes (Other)
  Sender: FDA-Public Use
  Company Number: US-PFIZER INC-2010041253

PATIENT
  Sex: Female

DRUGS (3)
  1. LYRICA [Suspect]
     Indication: PAIN
     Dosage: 50MG DAILY
     Dates: start: 20090101
  2. NEURONTIN [Suspect]
     Dosage: 300 MG, 2X/DAY
     Dates: start: 20100301
  3. VALIUM [Concomitant]

REACTIONS (8)
  - DEHYDRATION [None]
  - HYPERHIDROSIS [None]
  - LIVER DISORDER [None]
  - MULTIPLE SCLEROSIS RELAPSE [None]
  - ROSACEA [None]
  - TEMPERATURE INTOLERANCE [None]
  - THIRST [None]
  - WEIGHT INCREASED [None]
